FAERS Safety Report 4295108-8 (Version None)
Quarter: 2004Q1

REPORT INFORMATION
  Report Type: 
  Country: None (occurrence: None)
  Receive Date: 20040216
  Receipt Date: 20040213
  Transmission Date: 20041129
  Serious: Yes (Hospitalization)
  Sender: FDA-Public Use
  Company Number: DE-GLAXOSMITHKLINE-D0043167A

PATIENT
  Age: 38 Year
  Sex: Male

DRUGS (2)
  1. LAMICTAL [Suspect]
     Dosage: 75MG TWICE PER DAY
     Route: 048
     Dates: start: 20030101
  2. VALPROIC ACID [Concomitant]
     Dosage: 750MG PER DAY
     Route: 065

REACTIONS (2)
  - AMMONIA INCREASED [None]
  - MENTAL DISORDER DUE TO A GENERAL MEDICAL CONDITION [None]
